FAERS Safety Report 4599994-3 (Version None)
Quarter: 2005Q1

REPORT INFORMATION
  Report Type: 
  Country: None (occurrence: None)
  Receive Date: 20050303
  Receipt Date: 20050224
  Transmission Date: 20050727
  Serious: Yes (Other)
  Sender: FDA-Public Use
  Company Number: NLWYE455024FEB05

PATIENT
  Age: 76 Year
  Sex: Female

DRUGS (2)
  1. EFFEXOR [Suspect]
     Dosage: 18.75 MG 1X PER 1 DAY ORAL
     Route: 048
     Dates: start: 20050202, end: 20050206
  2. PHENPROCOUMON (PHENPROCOUMON) [Suspect]
     Dates: start: 20040315

REACTIONS (2)
  - BLOOD URINE PRESENT [None]
  - DRUG INTERACTION [None]
